FAERS Safety Report 8308923-8 (Version None)
Quarter: 2012Q2

REPORT INFORMATION
  Report Type: 
  Country: None (occurrence: None)
  Receive Date: 20120424
  Receipt Date: 20120419
  Transmission Date: 20120825
  Serious: Yes (Hospitalization, Other)
  Sender: FDA-Public Use
  Company Number: US-AMGEN-USASP2012024772

PATIENT
  Age: 47 Year
  Sex: Female
  Weight: 120.2 kg

DRUGS (2)
  1. CHEMOTHERAPEUTICS [Concomitant]
     Indication: BREAST CANCER
     Dosage: UNK
     Dates: start: 20120404
  2. NEULASTA [Suspect]
     Indication: NEUTROPENIA
     Dosage: 6 MG, Q3WK
     Dates: start: 20120405

REACTIONS (7)
  - PAIN IN EXTREMITY [None]
  - RASH GENERALISED [None]
  - HYPERSENSITIVITY [None]
  - BREAST SWELLING [None]
  - ARTHRALGIA [None]
  - PYREXIA [None]
  - BREAST PAIN [None]
